FAERS Safety Report 11083045 (Version 1)
Quarter: 2015Q2

REPORT INFORMATION
  Report Type: Spontaneous
  Country: US (occurrence: US)
  Receive Date: 20150501
  Receipt Date: 20150501
  Transmission Date: 20150821
  Serious: No
  Sender: FDA-Public Use
  Company Number: US-ABBVIE-14P-163-1291364-00

PATIENT
  Age: 56 Year
  Sex: Male
  Weight: 81.72 kg

DRUGS (8)
  1. ANDROGEL [Suspect]
     Active Substance: TESTOSTERONE
     Dosage: 2 PUMPS DAILY
     Route: 061
     Dates: start: 2014, end: 2014
  2. ANDROGEL [Suspect]
     Active Substance: TESTOSTERONE
     Dosage: 5 PUMPS DAILY
     Route: 061
     Dates: start: 2014, end: 201409
  3. ARMOUR THYROID [Concomitant]
     Active Substance: THYROID, PORCINE\THYROID, UNSPECIFIED
     Indication: HYPOTHYROIDISM
     Route: 048
     Dates: end: 2014
  4. AZOR [Concomitant]
     Active Substance: AMLODIPINE BESYLATE\OLMESARTAN MEDOXOMIL
     Indication: HYPERTENSION
  5. ANDROGEL [Suspect]
     Active Substance: TESTOSTERONE
     Indication: BLOOD TESTOSTERONE DECREASED
     Dosage: 1 PUMP DAILY
     Route: 061
     Dates: start: 201403
  6. VITAMIN D3 [Concomitant]
     Active Substance: CHOLECALCIFEROL
     Indication: PRODUCT USED FOR UNKNOWN INDICATION
  7. MULTIVITAMIN [Concomitant]
     Active Substance: VITAMINS
     Indication: PRODUCT USED FOR UNKNOWN INDICATION
  8. ARMOUR THYROID [Concomitant]
     Active Substance: THYROID, PORCINE\THYROID, UNSPECIFIED
     Route: 048
     Dates: start: 2014

REACTIONS (5)
  - Bone pain [Not Recovered/Not Resolved]
  - Blood testosterone decreased [Not Recovered/Not Resolved]
  - Asthenia [Not Recovered/Not Resolved]
  - Arthralgia [Not Recovered/Not Resolved]
  - Drug ineffective [Not Recovered/Not Resolved]

NARRATIVE: CASE EVENT DATE: 2014
